FAERS Safety Report 16148873 (Version 6)
Quarter: 2020Q3

REPORT INFORMATION
  Report Type: Spontaneous
  Country: US (occurrence: US)
  Receive Date: 20190402
  Receipt Date: 20200708
  Transmission Date: 20201102
  Serious: Yes (Other)
  Sender: FDA-Public Use
  Company Number: US-PFIZER INC-2019130993

PATIENT
  Age: 60 Year
  Sex: Female
  Weight: 52 kg

DRUGS (3)
  1. GABAPENTIN. [Suspect]
     Active Substance: GABAPENTIN
     Indication: INTERVERTEBRAL DISC DEGENERATION
     Dosage: 600 MG, 1X/DAY (AT NIGHT)
  2. GABAPENTIN. [Suspect]
     Active Substance: GABAPENTIN
     Indication: NEUROPATHY PERIPHERAL
     Dosage: 600 MG, 1X/DAY (1 COUNT 400MG CAPSULE AND 2 COUNT 100MG CAPSULES/ONCE NIGHTLY)
     Route: 048
  3. GABAPENTIN. [Suspect]
     Active Substance: GABAPENTIN
     Dosage: 600 MG, UNK

REACTIONS (21)
  - Gait disturbance [Unknown]
  - Dyspnoea [Unknown]
  - Headache [Unknown]
  - Blood potassium decreased [Unknown]
  - Weight decreased [Not Recovered/Not Resolved]
  - Bone cyst [Unknown]
  - Intervertebral disc degeneration [Unknown]
  - Spinal pain [Not Recovered/Not Resolved]
  - Burning sensation [Unknown]
  - Drug effective for unapproved indication [Unknown]
  - Intervertebral disc protrusion [Unknown]
  - Grip strength decreased [Not Recovered/Not Resolved]
  - Neuralgia [Not Recovered/Not Resolved]
  - Chest pain [Unknown]
  - Product use in unapproved indication [Unknown]
  - Somnolence [Unknown]
  - Decreased appetite [Not Recovered/Not Resolved]
  - Off label use [Unknown]
  - Arthritis [Not Recovered/Not Resolved]
  - Osteoporosis [Not Recovered/Not Resolved]
  - Sciatica [Not Recovered/Not Resolved]

NARRATIVE: CASE EVENT DATE: 2002
